FAERS Safety Report 16702625 (Version 1)
Quarter: 2019Q3

REPORT INFORMATION
  Report Type: Spontaneous
  Country: US (occurrence: US)
  Receive Date: 20190627
  Receipt Date: 20190627
  Transmission Date: 20191004
  Serious: Yes (Life-Threatening, Hospitalization)
  Sender: FDA-Public Use
  Company Number: None

PATIENT
  Age: 77 Year
  Sex: Male

DRUGS (1)
  1. MERCAPTOPURINE. [Suspect]
     Active Substance: MERCAPTOPURINE
     Route: 048
     Dates: start: 20190201, end: 20190404

REACTIONS (4)
  - Transfusion [None]
  - Cholestatic liver injury [None]
  - Bone marrow failure [None]
  - Packed red blood cell transfusion [None]

NARRATIVE: CASE EVENT DATE: 20190404
